FAERS Safety Report 18201253 (Version 1)
Quarter: 2020Q3

REPORT INFORMATION
  Report Type: Spontaneous
  Country: KR (occurrence: KR)
  Receive Date: 20200827
  Receipt Date: 20200827
  Transmission Date: 20201103
  Serious: Yes (Death, Life-Threatening, Hospitalization, Other)
  Sender: FDA-Public Use
  Company Number: KR-TEVA-2020-KR-1820847

PATIENT
  Age: 79 Year
  Sex: Female

DRUGS (1)
  1. RISEDRONIC ACID [Suspect]
     Active Substance: RISEDRONIC ACID
     Indication: OSTEOPOROSIS
     Dosage: 35 MILLIGRAM EVERY 1 WEEK
     Route: 048
     Dates: start: 2008

REACTIONS (2)
  - Osteonecrosis of jaw [Unknown]
  - Meningoencephalitis bacterial [Fatal]

NARRATIVE: CASE EVENT DATE: 201708
